FAERS Safety Report 4729697-3 (Version None)
Quarter: 2005Q3

REPORT INFORMATION
  Report Type: 
  Country: None (occurrence: None)
  Receive Date: 20050801
  Receipt Date: 20050725
  Transmission Date: 20060218
  Serious: Yes (Other)
  Sender: FDA-Public Use
  Company Number: PT-MERCK-0507PRT00006

PATIENT
  Sex: Female

DRUGS (5)
  1. SINGULAIR [Suspect]
     Indication: ASTHMA
     Route: 048
     Dates: start: 20000101, end: 20050101
  2. SINGULAIR [Suspect]
     Route: 048
     Dates: start: 20050101
  3. BUDESONIDE [Concomitant]
     Route: 065
  4. TIOTROPIUM BROMIDE [Concomitant]
     Route: 065
  5. BISOPROLOL FUMARATE [Concomitant]
     Route: 065

REACTIONS (3)
  - PETECHIAE [None]
  - PLATELET COUNT DECREASED [None]
  - TREATMENT NONCOMPLIANCE [None]
